FAERS Safety Report 18850932 (Version 1)
Quarter: 2021Q1

REPORT INFORMATION
  Report Type: Report from Study
  Country: None (occurrence: DE)
  Receive Date: 20210204
  Receipt Date: 20210204
  Transmission Date: 20210420
  Serious: Yes (Death, Hospitalization)
  Sender: FDA-Public Use
  Company Number: DE-ABBVIE-20K-062-3503658-00

PATIENT
  Age: 79 Year
  Sex: Female

DRUGS (2)
  1. HUMIRA [Suspect]
     Active Substance: ADALIMUMAB
     Indication: RHEUMATOID ARTHRITIS
     Route: 058
     Dates: start: 201404
  2. METHOTREXATE. [Concomitant]
     Active Substance: METHOTREXATE
     Indication: PRODUCT USED FOR UNKNOWN INDICATION

REACTIONS (8)
  - Pneumonia staphylococcal [Unknown]
  - Arthritis infective [Unknown]
  - Staphylococcal sepsis [Fatal]
  - Melaena [Unknown]
  - Decubitus ulcer [Unknown]
  - Infectious pleural effusion [Unknown]
  - Skin ulcer [Unknown]
  - Septic shock [Fatal]

NARRATIVE: CASE EVENT DATE: 20190811
